FAERS Safety Report 8900658 (Version 2)
Quarter: 2014Q2

REPORT INFORMATION
  Report Type: Spontaneous
  Country: DE (occurrence: DE)
  Receive Date: 20121109
  Receipt Date: 20131030
  Transmission Date: 20141212
  Serious: Yes (Hospitalization)
  Sender: FDA-Public Use
  Company Number: DE-INCYTE CORPORATION-2012IN002207

PATIENT
  Sex: Male

DRUGS (4)
  1. JAKAVI [Suspect]
     Indication: MYELOFIBROSIS
     Dosage: 2 DF, (2X20MG) DAILY
     Route: 065
     Dates: start: 20121011, end: 20121023
  2. JAKAVI [Suspect]
     Dosage: 2X20 MG
     Route: 065
     Dates: start: 20121109
  3. JAKAVI [Suspect]
     Dosage: UNKNOWN
     Route: 065
     Dates: start: 20121109
  4. LITALIR [Suspect]
     Dosage: 500 MG, 3X/WEEK

REACTIONS (2)
  - Pneumonia [Unknown]
  - Platelet count decreased [Recovering/Resolving]
